FAERS Safety Report 7396449-8 (Version None)
Quarter: 2011Q1

REPORT INFORMATION
  Report Type: 
  Country: None (occurrence: None)
  Receive Date: 20110325
  Receipt Date: 20110321
  Transmission Date: 20110831
  Serious: Yes (Other)
  Sender: FDA-Public Use
  Company Number: 2011SP007917

PATIENT
  Age: 22 Year
  Sex: Female

DRUGS (6)
  1. SAPHRIS [Suspect]
     Indication: PRODUCT USED FOR UNKNOWN INDICATION
     Dosage: 5 MG; ; SL, 10 MG; ; SL, 2.5 MG; ; SL
     Route: 060
     Dates: start: 20101124, end: 20101125
  2. SAPHRIS [Suspect]
     Indication: PRODUCT USED FOR UNKNOWN INDICATION
     Dosage: 5 MG; ; SL, 10 MG; ; SL, 2.5 MG; ; SL
     Route: 060
     Dates: start: 20101122
  3. SAPHRIS [Suspect]
     Indication: PRODUCT USED FOR UNKNOWN INDICATION
     Dosage: 5 MG; ; SL, 10 MG; ; SL, 2.5 MG; ; SL
     Route: 060
     Dates: start: 20101015
  4. LAMICTAL [Concomitant]
  5. TOPIRAMATE [Concomitant]
  6. RISPERDAL [Concomitant]

REACTIONS (4)
  - MANIA [None]
  - PHARYNGEAL OEDEMA [None]
  - TONGUE DISORDER [None]
  - PRODUCT TASTE ABNORMAL [None]
